FAERS Safety Report 6558731-3 (Version None)
Quarter: 2010Q1

REPORT INFORMATION
  Report Type: 
  Country: None (occurrence: None)
  Receive Date: 20100129
  Receipt Date: 20100118
  Transmission Date: 20100710
  Serious: Yes (Other)
  Sender: FDA-Public Use
  Company Number: JP-PFIZER INC-2010008090

PATIENT
  Age: 77 Year
  Sex: Male

DRUGS (1)
  1. ALDACTONE [Suspect]
     Dosage: UNK
     Route: 048

REACTIONS (1)
  - PANCREATITIS [None]
